FAERS Safety Report 4338935-0 (Version None)
Quarter: 2004Q2

REPORT INFORMATION
  Report Type: 
  Country: None (occurrence: None)
  Receive Date: 20040409
  Receipt Date: 20040329
  Transmission Date: 20050107
  Serious: Yes (Other)
  Sender: FDA-Public Use
  Company Number: 2004014818

PATIENT
  Age: 45 Year
  Sex: Female
  Weight: 54.4316 kg

DRUGS (4)
  1. DILANTIN KAPSEAL [Suspect]
     Indication: CONVULSION
     Dosage: 400 MG (BID), ORAL
     Route: 048
     Dates: start: 19920101
  2. CLAVULIN (CLAVULANATE POTASSIUM, AMOXICILLIN TRIHYDRATE) [Suspect]
     Indication: SINUSITIS
     Dosage: 2000 MG (BID), ORAL
     Route: 048
     Dates: start: 20040224, end: 20040201
  3. LORAZEPAM [Concomitant]
  4. MULTIVITAMIN [Concomitant]

REACTIONS (4)
  - DRUG TOXICITY [None]
  - HERPES ZOSTER [None]
  - PHARMACEUTICAL PRODUCT COMPLAINT [None]
  - SINUSITIS [None]
